FAERS Safety Report 12426160 (Version 1)
Quarter: 2016Q2

REPORT INFORMATION
  Report Type: Spontaneous
  Country: US (occurrence: US)
  Receive Date: 20160601
  Receipt Date: 20160601
  Transmission Date: 20160815
  Serious: No
  Sender: FDA-Public Use
  Company Number: US-MDT-ADR-2015-02416

PATIENT
  Age: 54 Year
  Sex: Female

DRUGS (8)
  1. ERYTHROMYCIN. [Suspect]
     Active Substance: ERYTHROMYCIN
  2. BACLOFEN. [Suspect]
     Active Substance: BACLOFEN
     Dosage: 125 MCG/DAY
     Route: 037
  3. CLARITHROMYCIN. [Suspect]
     Active Substance: CLARITHROMYCIN
  4. ZOLOFT [Suspect]
     Active Substance: SERTRALINE HYDROCHLORIDE
  5. MUPIROCIN. [Suspect]
     Active Substance: MUPIROCIN
  6. CIPRO [Suspect]
     Active Substance: CIPROFLOXACIN HYDROCHLORIDE
  7. PERCOCET [Suspect]
     Active Substance: ACETAMINOPHEN\OXYCODONE HYDROCHLORIDE
  8. TYSABRI [Suspect]
     Active Substance: NATALIZUMAB

REACTIONS (1)
  - Rash [Recovered/Resolved]

NARRATIVE: CASE EVENT DATE: 20090716
